FAERS Safety Report 9656203 (Version 2)
Quarter: 2013Q4

REPORT INFORMATION
  Report Type: Spontaneous
  Country: US (occurrence: US)
  Receive Date: 20131030
  Receipt Date: 20131202
  Transmission Date: 20140711
  Serious: No
  Sender: FDA-Public Use
  Company Number: US-TEVA-441245USA

PATIENT
  Age: 13 Year
  Sex: Female

DRUGS (1)
  1. CLARAVIS [Suspect]
     Route: 048
     Dates: start: 20130807

REACTIONS (4)
  - Dermatitis [Unknown]
  - Drug administration error [Unknown]
  - Arthralgia [Recovered/Resolved with Sequelae]
  - Back pain [Recovered/Resolved with Sequelae]
